FAERS Safety Report 10973175 (Version 6)
Quarter: 2015Q2

REPORT INFORMATION
  Report Type: Report from Study
  Country: FR (occurrence: FR)
  Receive Date: 20150401
  Receipt Date: 20150623
  Transmission Date: 20150821
  Serious: Yes (Disabling)
  Sender: FDA-Public Use
  Company Number: FR-009507513-1503FRA014588

PATIENT
  Age: 41 Year
  Sex: Male
  Weight: 75 kg

DRUGS (2)
  1. DOLIPRANE [Concomitant]
     Active Substance: ACETAMINOPHEN
     Indication: PAIN
     Dosage: 1 TO 4 G PER DAY
     Route: 048
     Dates: start: 20141014
  2. PEMBROLIZUMAB. [Suspect]
     Active Substance: PEMBROLIZUMAB
     Indication: METASTATIC MALIGNANT MELANOMA
     Dosage: 2 MG/KG, Q3W
     Route: 042
     Dates: start: 20150120, end: 20150324

REACTIONS (3)
  - Adrenal insufficiency [Recovering/Resolving]
  - Arthritis [Recovering/Resolving]
  - Gout [Recovered/Resolved]

NARRATIVE: CASE EVENT DATE: 20150127
